FAERS Safety Report 9428332 (Version 1)
Quarter: 2013Q3

REPORT INFORMATION
  Report Type: Report from Study
  Country: US (occurrence: US)
  Receive Date: 20130730
  Receipt Date: 20130730
  Transmission Date: 20140515
  Serious: No
  Sender: FDA-Public Use
  Company Number: US-ABBOTT-12P-163-0964967-00

PATIENT
  Sex: Male
  Weight: 81.72 kg

DRUGS (6)
  1. NIASPAN (COATED) 1000MG [Suspect]
     Indication: PRODUCT USED FOR UNKNOWN INDICATION
  2. NIASPAN (COATED) 1000MG [Suspect]
     Dosage: 1 IN 1 DAY, AT BEDTIME
  3. NIASPAN (COATED) 1000MG [Suspect]
     Dosage: 1 IN 1 DAY, AT BEDTIME
  4. LISINOPRIL [Concomitant]
     Indication: PRODUCT USED FOR UNKNOWN INDICATION
  5. ANTARA [Concomitant]
     Indication: PRODUCT USED FOR UNKNOWN INDICATION
  6. ASA [Concomitant]
     Indication: PRODUCT USED FOR UNKNOWN INDICATION

REACTIONS (2)
  - Hyperhidrosis [Recovered/Resolved]
  - Blood glucose increased [Recovered/Resolved]
